FAERS Safety Report 9684555 (Version 2)
Quarter: 2013Q4

REPORT INFORMATION
  Report Type: Spontaneous
  Country: FR (occurrence: FR)
  Receive Date: 20131112
  Receipt Date: 20131211
  Transmission Date: 20140711
  Serious: Yes (Hospitalization)
  Sender: FDA-Public Use
  Company Number: FR-B.I. PHARMACEUTICALS,INC./RIDGEFIELD-2013-FF-02666FF

PATIENT
  Age: 92 Year
  Sex: Female
  Weight: 55 kg

DRUGS (11)
  1. PRADAXA [Suspect]
     Dosage: 150 MG
     Route: 048
     Dates: end: 20131024
  2. COVERAM [Suspect]
     Dosage: 5MG/5MG
     Route: 048
     Dates: end: 20131023
  3. PHYSIOTENS [Suspect]
     Dosage: 0.2 MG
     Route: 048
  4. LASILIX [Suspect]
     Dosage: 40 MG
     Route: 048
  5. EUPANTOL [Suspect]
     Dosage: 20 MG
     Route: 048
     Dates: end: 20131023
  6. BETASERC [Suspect]
     Dosage: 48 MG
     Route: 048
  7. TANGANIL [Suspect]
     Dosage: 1500 MG
     Route: 048
  8. XALATAN [Suspect]
     Dosage: 1 DROP IN EACH EYE
     Route: 047
  9. OROCAL D3 [Suspect]
     Route: 048
  10. DOLIPRANE [Suspect]
     Route: 048
  11. VOLTARENE EMULGEL [Suspect]
     Route: 061

REACTIONS (3)
  - Anaemia [Not Recovered/Not Resolved]
  - Faeces discoloured [Recovered/Resolved]
  - Gingival bleeding [Recovered/Resolved]
